FAERS Safety Report 11573555 (Version 1)
Quarter: 2015Q3

REPORT INFORMATION
  Report Type: Spontaneous
  Country: FR (occurrence: FR)
  Receive Date: 20150929
  Receipt Date: 20150929
  Transmission Date: 20151125
  Serious: Yes (Other)
  Sender: FDA-Public Use
  Company Number: FR-B.I. PHARMACEUTICALS,INC./RIDGEFIELD-2015-BI-52337FF

PATIENT
  Sex: Female

DRUGS (4)
  1. STALEVO [Suspect]
     Active Substance: CARBIDOPA\ENTACAPONE\LEVODOPA
     Indication: PRODUCT USED FOR UNKNOWN INDICATION
     Route: 048
  2. SINEMET [Suspect]
     Active Substance: CARBIDOPA\LEVODOPA
     Indication: PARKINSONISM
     Dosage: 300 MG
     Route: 048
     Dates: start: 2006
  3. MODOPAR [Suspect]
     Active Substance: BENSERAZIDE HYDROCHLORIDE\LEVODOPA
     Indication: PRODUCT USED FOR UNKNOWN INDICATION
     Dosage: FORMULATION: ORODISPERSIBLE TABLET
     Route: 065
  4. SIFROL [Suspect]
     Active Substance: PRAMIPEXOLE
     Indication: PARKINSONISM
     Dosage: 2.1 MG
     Route: 048
     Dates: start: 2006, end: 201502

REACTIONS (2)
  - Compulsive shopping [Unknown]
  - Bulimia nervosa [Unknown]

NARRATIVE: CASE EVENT DATE: 2010
